FAERS Safety Report 10651568 (Version 1)
Quarter: 2014Q4

REPORT INFORMATION
  Report Type: Spontaneous
  Country: US (occurrence: None)
  Receive Date: 20141212
  Receipt Date: 20141212
  Transmission Date: 20150529
  Serious: No
  Sender: FDA-Public Use
  Company Number: None

PATIENT
  Age: 59 Year
  Sex: Male

DRUGS (12)
  1. REVLIMID [Suspect]
     Active Substance: LENALIDOMIDE
     Indication: AMYLOIDOSIS
     Dosage: 5 MG, DAILY X21D/28D, ORALLY
     Route: 048
     Dates: start: 201009
  2. SODIUM BICARBONATE-SODIUM CHLORIDE (NEILMED SINUS RINSE COMPLETE)? [Concomitant]
  3. ASPRIN (ECOTRIN LOW STRENGTH) [Concomitant]
  4. FLUTICASONE (FLONASE) [Concomitant]
  5. TRIAMCINOLONE ACETONIDE (KENALOG) [Concomitant]
  6. INHALATIONAL SPACER (E-Z SPACER) [Concomitant]
  7. BECLOMETHASONE DIPROPIONATE (QVAR) [Concomitant]
  8. SPIRONOLACTONE (ALDACTONE) [Concomitant]
  9. ALBUTEROL (PROAIR HFA) [Concomitant]
  10. CETIRIZINE (ZYRTEC) [Concomitant]
  11. CALCIUM CARBONATE/VITAMIN D3 (CALCIUM WITH VITAMIN D ORAL) [Concomitant]
  12. VARDENAFIL (LEVITRA) [Concomitant]

REACTIONS (1)
  - Neutropenia [None]

NARRATIVE: CASE EVENT DATE: 20141113
